FAERS Safety Report 14832471 (Version 1)
Quarter: 2018Q2

REPORT INFORMATION
  Report Type: Spontaneous
  Country: FR (occurrence: FR)
  Receive Date: 20180501
  Receipt Date: 20180501
  Transmission Date: 20180711
  Serious: Yes (Other)
  Sender: FDA-Public Use
  Company Number: FR-MERCK KGAA-2046895

PATIENT
  Age: 48 Year
  Sex: Female

DRUGS (1)
  1. NOVOTHYROX [Suspect]
     Active Substance: LEVOTHYROXINE SODIUM
     Indication: HYPOTHYROIDISM
     Dates: start: 201707

REACTIONS (17)
  - Diarrhoea [None]
  - Memory impairment [None]
  - Anxiety [None]
  - Migraine [None]
  - Sleep disorder [None]
  - Insomnia [None]
  - Muscle spasms [None]
  - Gastrointestinal disorder [None]
  - Disturbance in attention [None]
  - Fatigue [None]
  - Affect lability [None]
  - Asthenia [None]
  - Blood cholesterol increased [None]
  - C-reactive protein increased [None]
  - Irritability [None]
  - Mood swings [None]
  - Loss of personal independence in daily activities [None]

NARRATIVE: CASE EVENT DATE: 201708
